FAERS Safety Report 9918425 (Version 1)
Quarter: 2014Q1

REPORT INFORMATION
  Report Type: Spontaneous
  Country: US (occurrence: US)
  Receive Date: 20140224
  Receipt Date: 20140224
  Transmission Date: 20141002
  Serious: No
  Sender: FDA-Public Use
  Company Number: US-BIOGENIDEC-2014BI017316

PATIENT
  Age: 65 Year
  Sex: Female

DRUGS (9)
  1. AVONEX [Suspect]
     Indication: MULTIPLE SCLEROSIS
     Route: 030
  2. AMLODIPINE BESYLATE [Concomitant]
  3. BISOPROLOL-HYDROCHLOROTHIAZIDE [Concomitant]
  4. CALCIUM 600 +D [Concomitant]
  5. LEVOTHYROXINE SODIUM [Concomitant]
  6. MULTI FOR HER [Concomitant]
  7. POTASSIUM CHLORIDE CRYS ER [Concomitant]
  8. SIMVASTATIN [Concomitant]
  9. VESICARE [Concomitant]

REACTIONS (1)
  - Cellulitis [Unknown]
